FAERS Safety Report 6329724-6 (Version None)
Quarter: 2009Q3

REPORT INFORMATION
  Report Type: 
  Country: None (occurrence: None)
  Receive Date: 20090826
  Receipt Date: 20090814
  Transmission Date: 20100115
  Serious: Yes (Other)
  Sender: FDA-Public Use
  Company Number: US-WYE-H10589009

PATIENT
  Sex: Female

DRUGS (14)
  1. PRISTIQ [Suspect]
     Dosage: UNKNOWN
     Dates: start: 20090201
  2. WELLBUTRIN [Suspect]
     Indication: DEPRESSION
     Dosage: UNKNOWN
  3. CONCERTA [Suspect]
     Dosage: UNKNOWN
     Dates: start: 20040201
  4. WELLBUTRIN XL [Suspect]
     Indication: DEPRESSION
     Route: 048
     Dates: start: 20090501, end: 20090714
  5. WELLBUTRIN XL [Suspect]
     Dates: start: 20090715, end: 20090724
  6. WELLBUTRIN XL [Suspect]
     Dosage: INSTRUCTED TO SPLIT THE XL TABLET IN HALF
     Route: 048
     Dates: start: 20090725
  7. ETHINYL ESTRADIOL TAB [Concomitant]
  8. ORTHO CYCLEN-28 [Concomitant]
  9. LORAZEPAM [Concomitant]
  10. ALPRAZOLAM [Concomitant]
  11. CLONAZEPAM [Concomitant]
  12. NORETHISTERONE [Concomitant]
  13. FLUOXETINE [Suspect]
     Dosage: UNKNOWN DOSE FROM AN UNKNOWN DATE TO MAY-2009
  14. ADDERALL 10 [Concomitant]

REACTIONS (16)
  - ANXIETY [None]
  - ASTHENIA [None]
  - ATTENTION DEFICIT/HYPERACTIVITY DISORDER [None]
  - BRUXISM [None]
  - DEPRESSION [None]
  - DYSPHORIA [None]
  - FEELING ABNORMAL [None]
  - HYPERHIDROSIS [None]
  - INSOMNIA [None]
  - IRRITABILITY [None]
  - MEMORY IMPAIRMENT [None]
  - NECK PAIN [None]
  - OBSESSIVE-COMPULSIVE DISORDER [None]
  - SENSATION OF HEAVINESS [None]
  - SUICIDAL IDEATION [None]
  - UNEVALUABLE EVENT [None]
